FAERS Safety Report 9175344 (Version 4)
Quarter: 2013Q4

REPORT INFORMATION
  Report Type: Spontaneous
  Country: JP (occurrence: JP)
  Receive Date: 20130320
  Receipt Date: 20131220
  Transmission Date: 20140711
  Serious: Yes (Death, Other)
  Sender: FDA-Public Use
  Company Number: JP-ROCHE-1203206

PATIENT
  Age: 74 Year
  Sex: Male

DRUGS (12)
  1. AVASTIN [Suspect]
     Indication: RECTAL CANCER METASTATIC
     Dosage: DOSAGE IS UNCERTAIN
     Route: 041
     Dates: start: 20100715, end: 20120607
  2. ELPLAT [Suspect]
     Indication: RECTAL CANCER METASTATIC
     Route: 041
     Dates: start: 20100715, end: 20101021
  3. LEVOFOLINATE [Suspect]
     Indication: RECTAL CANCER METASTATIC
     Route: 041
     Dates: start: 20100715, end: 20101021
  4. LEVOFOLINATE [Suspect]
     Indication: RECTAL CANCER METASTATIC
     Route: 041
     Dates: start: 20101104, end: 20101216
  5. LEVOFOLINATE [Suspect]
     Indication: RECTAL CANCER METASTATIC
     Route: 041
     Dates: start: 20110707, end: 20120607
  6. 5-FU [Suspect]
     Indication: RECTAL CANCER METASTATIC
     Route: 040
     Dates: start: 20100715, end: 20101021
  7. 5-FU [Suspect]
     Indication: RECTAL CANCER METASTATIC
     Route: 041
     Dates: start: 20100715, end: 20101021
  8. 5-FU [Suspect]
     Indication: RECTAL CANCER METASTATIC
     Route: 040
     Dates: start: 20101104, end: 20101216
  9. 5-FU [Suspect]
     Indication: RECTAL CANCER METASTATIC
     Route: 041
     Dates: start: 20101104, end: 20101216
  10. 5-FU [Suspect]
     Indication: RECTAL CANCER METASTATIC
     Route: 040
     Dates: start: 20110707, end: 20120607
  11. 5-FU [Suspect]
     Indication: RECTAL CANCER METASTATIC
     Route: 041
     Dates: start: 20110707, end: 20120607
  12. TOPOTECIN [Suspect]
     Indication: RECTAL CANCER METASTATIC
     Route: 041
     Dates: start: 20110707, end: 20120607

REACTIONS (4)
  - Hepatitis fulminant [Fatal]
  - Hepatic failure [Fatal]
  - Hepatitis B [Unknown]
  - Stomatitis [Recovered/Resolved]
